FAERS Safety Report 13912033 (Version 1)
Quarter: 2017Q3

REPORT INFORMATION
  Report Type: Spontaneous
  Country: US (occurrence: US)
  Receive Date: 20170828
  Receipt Date: 20170828
  Transmission Date: 20171127
  Serious: No
  Sender: FDA-Public Use
  Company Number: US-ROCHE-GNE322146

PATIENT
  Age: 10 Year
  Sex: Male
  Weight: 28.15 kg

DRUGS (1)
  1. NUTROPIN AQ [Suspect]
     Active Substance: SOMATROPIN
     Indication: PRODUCT USED FOR UNKNOWN INDICATION
     Dosage: 1.2 MG, QD
     Route: 058
     Dates: start: 20110705

REACTIONS (3)
  - Headache [None]
  - Arthralgia [Recovered/Resolved]
  - Pain [None]

NARRATIVE: CASE EVENT DATE: 20110705
